FAERS Safety Report 5430276-3 (Version None)
Quarter: 2007Q3

REPORT INFORMATION
  Report Type: 
  Country: None (occurrence: None)
  Receive Date: 20070731
  Receipt Date: 20070423
  Transmission Date: 20080115
  Serious: No
  Sender: FDA-Public Use
  Company Number: US200704003606

PATIENT
  Age: 67 Year
  Sex: Female
  Weight: 84.4 kg

DRUGS (12)
  1. BYETTA [Suspect]
     Indication: TYPE 2 DIABETES MELLITUS
     Dosage: 10 UG, 2/D, SUBCUTANEOUS
     Route: 058
     Dates: start: 20050101, end: 20061201
  2. BYETTA [Suspect]
     Indication: TYPE 2 DIABETES MELLITUS
     Dosage: 10 UG, 2/D, SUBCUTANEOUS
     Route: 058
     Dates: start: 20060401
  3. BYETTA [Suspect]
     Indication: TYPE 2 DIABETES MELLITUS
     Dosage: 10 UG, 2/D, SUBCUTANEOUS
     Route: 058
     Dates: start: 20061201
  4. BYETTA [Suspect]
     Dosage: 10UG,  2/D
     Route: 058
     Dates: start: 20061201
  5. EXENATIDE  DISPOSABLE DEVICE (EXENATIDE PEN (5MCG)) [Concomitant]
  6. AMARYL [Concomitant]
  7. ATROVENT  (IPRARTOPIUM BROMIDE) [Concomitant]
  8. QVAR [Concomitant]
  9. DUONEB [Concomitant]
  10. ZOCOR [Concomitant]
  11. GLUCOPHAGE [Concomitant]
  12. BYETTA [Suspect]
     Indication: TYPE 2 DIABETES MELLITUS
     Dosage: 5UG, 2/D
     Route: 058
     Dates: start: 20050101, end: 20061212

REACTIONS (13)
  - BLOOD CHOLESTEROL INCREASED [None]
  - BLOOD GLUCOSE INCREASED [None]
  - BLOOD TRIGLYCERIDES INCREASED [None]
  - DIZZINESS [None]
  - HEADACHE [None]
  - HYPERTENSION [None]
  - INJECTION SITE RASH [None]
  - NAUSEA [None]
  - PHOTOPHOBIA [None]
  - PRESYNCOPE [None]
  - THYROID DISORDER [None]
  - VISION BLURRED [None]
  - WEIGHT DECREASED [None]
